FAERS Safety Report 6961804-4 (Version None)
Quarter: 2010Q3

REPORT INFORMATION
  Report Type: 
  Country: None (occurrence: None)
  Receive Date: 20100901
  Receipt Date: 20100825
  Transmission Date: 20110219
  Serious: Yes (Death, Other)
  Sender: FDA-Public Use
  Company Number: US-AMGEN-QUU434133

PATIENT
  Sex: Female

DRUGS (2)
  1. NPLATE [Suspect]
     Indication: IDIOPATHIC THROMBOCYTOPENIC PURPURA
     Dates: start: 20090319, end: 20090526
  2. PROMACTA [Concomitant]

REACTIONS (4)
  - APLASTIC ANAEMIA [None]
  - MULTI-ORGAN FAILURE [None]
  - SEPSIS [None]
  - WOUND [None]
